FAERS Safety Report 16639857 (Version 1)
Quarter: 2019Q3

REPORT INFORMATION
  Report Type: Spontaneous
  Country: LV (occurrence: LV)
  Receive Date: 20190727
  Receipt Date: 20190727
  Transmission Date: 20191004
  Serious: Yes (Hospitalization)
  Sender: FDA-Public Use
  Company Number: LV-TEVA-2019-LV-1084034

PATIENT
  Age: 73 Year
  Sex: Female

DRUGS (1)
  1. IMATINIB 400 MG [Suspect]
     Active Substance: IMATINIB
     Indication: CHRONIC MYELOID LEUKAEMIA
     Dosage: 400MG
     Route: 065
     Dates: start: 20190612, end: 20190628

REACTIONS (3)
  - Rash pruritic [Recovering/Resolving]
  - Oedema [Recovering/Resolving]
  - Rash maculo-papular [Recovering/Resolving]

NARRATIVE: CASE EVENT DATE: 20190627
